FAERS Safety Report 9665798 (Version 1)
Quarter: 2013Q4

REPORT INFORMATION
  Report Type: Report from Study
  Country: AR (occurrence: AR)
  Receive Date: 20131104
  Receipt Date: 20131104
  Transmission Date: 20140711
  Serious: Yes (Hospitalization)
  Sender: FDA-Public Use
  Company Number: PHHY2013AR124655

PATIENT
  Sex: Female

DRUGS (2)
  1. EXFORGE [Suspect]
     Indication: HYPERTENSION
     Dosage: 1 DF (160/5MG) DAILY
     Route: 048
     Dates: start: 2003
  2. EXFORGE [Suspect]
     Dosage: 1 DF (160/5MG) DAILY
     Route: 048
     Dates: start: 20131010

REACTIONS (4)
  - Blood sodium decreased [Recovered/Resolved]
  - Blood potassium decreased [Recovered/Resolved]
  - Agitation [Unknown]
  - Fatigue [Unknown]
